FAERS Safety Report 4797314-2 (Version None)
Quarter: 2005Q3

REPORT INFORMATION
  Report Type: 
  Country: None (occurrence: None)
  Receive Date: 20050930
  Receipt Date: 20050728
  Transmission Date: 20060218
  Serious: Yes (Hospitalization)
  Sender: FDA-Public Use
  Company Number: USA040669748

PATIENT
  Age: 70 Year
  Sex: Male
  Weight: 97 kg

DRUGS (10)
  1. GEMZAR [Suspect]
     Indication: NON-SMALL CELL LUNG CANCER STAGE IIIB
     Dosage: 1760 MG
     Dates: start: 20040604, end: 20040806
  2. ALIMTA [Suspect]
     Indication: NON-SMALL CELL LUNG CANCER STAGE IIIB
     Dosage: 1000 MG
     Dates: start: 20050404
  3. OMNICEF [Concomitant]
  4. CARBOPLATIN [Concomitant]
  5. COUMADIN [Concomitant]
  6. FOLIC ACID [Concomitant]
  7. VITAMIN B-12 [Concomitant]
  8. COMPAZINE [Concomitant]
  9. DEXAMETHASONE [Concomitant]
  10. NAPROXEN SODIUM [Concomitant]

REACTIONS (7)
  - FATIGUE [None]
  - HAEMOPTYSIS [None]
  - INTERNATIONAL NORMALISED RATIO INCREASED [None]
  - RED BLOOD CELL COUNT DECREASED [None]
  - SUPERIOR VENA CAVAL OCCLUSION [None]
  - VOMITING [None]
  - WHITE BLOOD CELL COUNT DECREASED [None]
